FAERS Safety Report 26022528 (Version 1)
Quarter: 2025Q4

REPORT INFORMATION
  Report Type: Spontaneous
  Country: US (occurrence: US)
  Receive Date: 20251110
  Receipt Date: 20251110
  Transmission Date: 20260118
  Serious: Yes (Other)
  Sender: FRESENIUS KABI
  Company Number: US-FreseniusKabi-FK202514765

PATIENT
  Age: 40 Year
  Sex: Male
  Weight: 103.5 kg

DRUGS (27)
  1. FLUOROURACIL [Suspect]
     Active Substance: FLUOROURACIL
     Indication: Adenocarcinoma pancreas
     Dosage: FOA: INJECTION?5-FU 5,550 MG IV OVER 48 HOURS?START DATE: 10/01 @ 1730?END DATE: 10/01 @2330?TIME GA
     Route: 042
  2. FLUOROURACIL [Suspect]
     Active Substance: FLUOROURACIL
     Dosage: INFUSION OF 5-FU START 10/16 @1620 PLANNED FOR 3 DAYS TOTAL?ED: 10/17 @1350?TIME GAP: APPROX 21.5H
  3. FLUOROURACIL [Suspect]
     Active Substance: FLUOROURACIL
  4. IRINOTECAN [Suspect]
     Active Substance: IRINOTECAN
     Indication: Adenocarcinoma pancreas
  5. LEUCOVORIN CALCIUM [Suspect]
     Active Substance: LEUCOVORIN CALCIUM
     Indication: Adenocarcinoma pancreas
     Dosage: INFUSION
  6. LEUCOVORIN CALCIUM [Suspect]
     Active Substance: LEUCOVORIN CALCIUM
     Dosage: START DATE: OCTOBER 1ST?FOA: INFUSION
     Dates: start: 20251001
  7. OXALIPLATIN [Suspect]
     Active Substance: OXALIPLATIN
     Indication: Adenocarcinoma pancreas
     Dosage: FOA: INFUSION?APOTEX
  8. OXALIPLATIN [Suspect]
     Active Substance: OXALIPLATIN
     Dosage: MYLAN
     Dates: start: 20251016
  9. OXALIPLATIN [Suspect]
     Active Substance: OXALIPLATIN
  10. VITAMIN D3 [Concomitant]
     Active Substance: CHOLECALCIFEROL
     Indication: Product used for unknown indication
     Dosage: FOA: TABLET?25 MCG (1000 UNIT) TAB
  11. DECADRON [Concomitant]
     Active Substance: DEXAMETHASONE
     Indication: Product used for unknown indication
     Dosage: FOA: TAB
  12. FENTANYL [Concomitant]
     Active Substance: FENTANYL
     Indication: Product used for unknown indication
     Dosage: FOA: TRANSDERMAL PATCH
  13. GABAPENTIN [Concomitant]
     Active Substance: GABAPENTIN
     Indication: Product used for unknown indication
     Dosage: FOA: CAPSULE
  14. LEVETIRACETAM [Concomitant]
     Active Substance: LEVETIRACETAM
     Indication: Product used for unknown indication
     Dosage: FOA: TABLET
  15. LIDOCAINE\PRILOCAINE [Concomitant]
     Active Substance: LIDOCAINE\PRILOCAINE
     Indication: Product used for unknown indication
     Dosage: 2.5-2.5% CREAM
  16. Lipase-protease-amylase (Creon-24) [Concomitant]
     Indication: Product used for unknown indication
     Dosage: 24,000-76,000-120,000 UNIT DR
  17. ONDANSETRON [Concomitant]
     Active Substance: ONDANSETRON
     Indication: Product used for unknown indication
     Dosage: FOA: ODT (ORALLY DISINTEGRATING TABLET)
  18. OXYCODONE [Concomitant]
     Active Substance: OXYCODONE
     Indication: Product used for unknown indication
     Dosage: FOA: IR TABLET
  19. POLYETHYLENE GLYCOL [Concomitant]
     Active Substance: POLYETHYLENE GLYCOL
     Indication: Product used for unknown indication
     Dosage: FOA: ORAL POWDER
  20. DEXAMETHASONE [Concomitant]
     Active Substance: DEXAMETHASONE
     Indication: Product used for unknown indication
     Dosage: DEXAMETHASONE 12 MG IN NACL 0.9% 50 ML IV
     Route: 042
  21. PALONOSETRON [Concomitant]
     Active Substance: PALONOSETRON
     Indication: Product used for unknown indication
     Route: 042
  22. FOSAPREPITANT [Concomitant]
     Active Substance: FOSAPREPITANT
     Indication: Product used for unknown indication
     Dosage: FOSAPREPITANT 150 MG IN NACL 0.9% 250 ML IV
     Route: 042
  23. LEUCOVORIN CALCIUM [Concomitant]
     Active Substance: LEUCOVORIN CALCIUM
     Indication: Product used for unknown indication
     Dosage: LEUCOVORIN CALCIUM 928 MG IN D5 250 ML IV
     Route: 042
  24. DIPHENHYDRAMINE [Concomitant]
     Active Substance: DIPHENHYDRAMINE
     Indication: Product used for unknown indication
     Route: 042
  25. SODIUM CHLORIDE [Concomitant]
     Active Substance: SODIUM CHLORIDE
     Indication: Product used for unknown indication
     Dosage: DEXAMETHASONE 12 MG IN NACL 0.9% 50 ML IV
     Route: 042
  26. SODIUM CHLORIDE [Concomitant]
     Active Substance: SODIUM CHLORIDE
     Dosage: FOSAPREPITANT 150 MG IN NACL 0.9% 250 ML IV
     Route: 042
  27. DEXTROSE [Concomitant]
     Active Substance: DEXTROSE MONOHYDRATE
     Indication: Product used for unknown indication
     Dosage: LEUCOVORIN CALCIUM 928 MG IN D5 250 ML IV
     Route: 042

REACTIONS (2)
  - Generalised tonic-clonic seizure [Unknown]
  - Drug intolerance [Unknown]

NARRATIVE: CASE EVENT DATE: 20250101
